FAERS Safety Report 20423019 (Version 1)
Quarter: 2022Q1

REPORT INFORMATION
  Report Type: Spontaneous
  Country: US (occurrence: US)
  Receive Date: 20220203
  Receipt Date: 20220203
  Transmission Date: 20220423
  Serious: Yes (Hospitalization, Other)
  Sender: FDA-Public Use
  Company Number: US-PFIZER INC-202200145643

PATIENT
  Age: 71 Year
  Sex: Male

DRUGS (1)
  1. VYNDAMAX [Suspect]
     Active Substance: TAFAMIDIS
     Dosage: 61 MG
     Dates: start: 20211030

REACTIONS (6)
  - Cardiac failure [Unknown]
  - Fluid retention [Unknown]
  - Pleural effusion [Unknown]
  - Pruritus [Unknown]
  - Constipation [Unknown]
  - Product dose omission issue [Unknown]
